FAERS Safety Report 4429638-2 (Version None)
Quarter: 2004Q3

REPORT INFORMATION
  Report Type: 
  Country: None (occurrence: None)
  Receive Date: 20040806
  Receipt Date: 20040421
  Transmission Date: 20050211
  Serious: Yes (Hospitalization, Other)
  Sender: FDA-Public Use
  Company Number: 601226

PATIENT
  Age: 50 Year
  Sex: Male
  Weight: 92.0802 kg

DRUGS (6)
  1. GAMMAGARD S/D [Suspect]
     Indication: HYPOGAMMAGLOBULINAEMIA
     Dosage: 45 GM; Q6W; INTRAVENOUS
     Route: 042
     Dates: start: 20040414, end: 20040414
  2. GAMMAGARD S/D [Suspect]
  3. ALLEGRA [Concomitant]
  4. GUAIFENESIN [Concomitant]
  5. DEXTROMETHORPAM [Concomitant]
  6. LOTENSIN [Concomitant]

REACTIONS (6)
  - ABDOMINAL PAIN UPPER [None]
  - BACK PAIN [None]
  - BLOOD PRESSURE INCREASED [None]
  - ELECTROCARDIOGRAM ST SEGMENT ELEVATION [None]
  - MYOCARDIAL INFARCTION [None]
  - PAIN IN JAW [None]
